FAERS Safety Report 21693005 (Version 1)
Quarter: 2022Q4

REPORT INFORMATION
  Report Type: Spontaneous
  Country: PT (occurrence: PT)
  Receive Date: 20221207
  Receipt Date: 20221207
  Transmission Date: 20230112
  Serious: Yes (Other)
  Sender: FDA-Public Use
  Company Number: PT-TOWA-202204000

PATIENT
  Age: 81 Year
  Sex: Male

DRUGS (3)
  1. GABAPENTIN [Interacting]
     Active Substance: GABAPENTIN
     Indication: Phantom limb syndrome
     Dosage: SOS
     Route: 065
  2. MORPHINE [Interacting]
     Active Substance: MORPHINE
     Indication: Pain
     Dosage: UNK
     Route: 048
  3. BUPRENORPHINE [Concomitant]
     Active Substance: BUPRENORPHINE
     Indication: Pain
     Dosage: UNK
     Route: 062

REACTIONS (3)
  - Potentiating drug interaction [Unknown]
  - Pyrexia [Recovered/Resolved]
  - Confusional state [Recovered/Resolved]
